FAERS Safety Report 21263807 (Version 1)
Quarter: 2022Q3

REPORT INFORMATION
  Report Type: Spontaneous
  Country: US (occurrence: US)
  Receive Date: 20220829
  Receipt Date: 20220829
  Transmission Date: 20221026
  Serious: Yes (Hospitalization)
  Sender: FDA-Public Use
  Company Number: US-RECORDATI-2022000142

PATIENT
  Age: 19 Year
  Sex: Male
  Weight: 56 kg

DRUGS (4)
  1. DACTINOMYCIN [Suspect]
     Active Substance: DACTINOMYCIN
     Indication: Alveolar rhabdomyosarcoma
     Dosage: TOTAL DOSE 2.5 MILLIGRAM
     Route: 065
     Dates: start: 20180731, end: 20180731
  2. TEMSIROLIMUS [Suspect]
     Active Substance: TEMSIROLIMUS
     Indication: Alveolar rhabdomyosarcoma
     Dosage: TOTAL DOSE 47.4 MILLIGRAM
     Route: 065
     Dates: start: 20180731, end: 20180807
  3. VINCRISTINE SULFATE [Suspect]
     Active Substance: VINCRISTINE SULFATE
     Indication: Alveolar rhabdomyosarcoma
     Dosage: 6 MILLIGRAM
     Route: 065
     Dates: start: 20180731, end: 20180814
  4. CYCLOPHOSPHAMIDE [Suspect]
     Active Substance: CYCLOPHOSPHAMIDE
     Indication: Alveolar rhabdomyosarcoma
     Dosage: TOTAL DOSE 1896 MILLIGRAM
     Route: 065
     Dates: start: 20180731, end: 20180731

REACTIONS (1)
  - Stomatitis [Not Recovered/Not Resolved]

NARRATIVE: CASE EVENT DATE: 20180814
